FAERS Safety Report 5479973-4 (Version None)
Quarter: 2007Q4

REPORT INFORMATION
  Report Type: 
  Country: None (occurrence: None)
  Receive Date: 20071008
  Receipt Date: 20071002
  Transmission Date: 20080405
  Serious: Yes (Hospitalization)
  Sender: FDA-Public Use
  Company Number: US-MERCK-0709USA01330

PATIENT
  Age: 66 Year
  Sex: Male

DRUGS (2)
  1. JANUMET [Suspect]
     Indication: DIABETES MELLITUS
     Route: 048
     Dates: start: 20070420, end: 20070803
  2. METFORMIN [Concomitant]
     Route: 065

REACTIONS (2)
  - LABORATORY TEST ABNORMAL [None]
  - OEDEMA [None]
